FAERS Safety Report 6987376-6 (Version None)
Quarter: 2010Q3

REPORT INFORMATION
  Report Type: 
  Country: None (occurrence: None)
  Receive Date: 20100913
  Receipt Date: 20100831
  Transmission Date: 20110219
  Serious: Yes (Life-Threatening)
  Sender: FDA-Public Use
  Company Number: CIP10002070

PATIENT
  Age: 69 Year
  Sex: Male

DRUGS (1)
  1. RISEDRONATE SODIUM [Suspect]
     Indication: OSTEOPOROSIS
     Dosage: 17.5 MG ONCE A WEEK, ORAL
     Route: 048
     Dates: start: 20100331, end: 20100817

REACTIONS (2)
  - CEREBRAL INFARCTION [None]
  - DYSPHAGIA [None]
